FAERS Safety Report 4725787-X (Version None)
Quarter: 2005Q3

REPORT INFORMATION
  Report Type: 
  Country: None (occurrence: None)
  Receive Date: 20050725
  Receipt Date: 20050715
  Transmission Date: 20060218
  Serious: Yes (Other)
  Sender: FDA-Public Use
  Company Number: HQWYE617822JUN05

PATIENT
  Age: 57 Year
  Sex: Male
  Weight: 93.8 kg

DRUGS (2)
  1. MYLOTARG [Suspect]
     Indication: ACUTE MYELOID LEUKAEMIA
     Dosage: 13.2 MG 1X PER 1 DAY, INTRAVENOUS
     Route: 042
     Dates: start: 20050613, end: 20050613
  2. CYTARABINE [Concomitant]

REACTIONS (3)
  - CHOLECYSTITIS [None]
  - GALLBLADDER DISORDER [None]
  - ULTRASOUND LIVER ABNORMAL [None]
